FAERS Safety Report 4359169-X (Version None)
Quarter: 2004Q2

REPORT INFORMATION
  Report Type: 
  Country: None (occurrence: None)
  Receive Date: 20040517
  Receipt Date: 20040517
  Transmission Date: 20050107
  Serious: Yes (Hospitalization)
  Sender: FDA-Public Use
  Company Number: None

PATIENT
  Age: 57 Year
  Sex: Male

DRUGS (10)
  1. ATENOLOL [Suspect]
     Dosage: 25 MG QD
     Dates: start: 20031111
  2. OXYCODONE [Concomitant]
  3. CLONIDINE HCL [Concomitant]
  4. IPRATROPION [Concomitant]
  5. FOSINOPRIL SODIUM [Concomitant]
  6. MEGESTROL [Concomitant]
  7. CLONAZEPAM [Concomitant]
  8. TERAZOSIN HCL [Concomitant]
  9. VERAPAMIL [Concomitant]
  10. NITROGLYCERIN [Concomitant]

REACTIONS (1)
  - DIZZINESS [None]
